FAERS Safety Report 12307126 (Version 1)
Quarter: 2016Q2

REPORT INFORMATION
  Report Type: Spontaneous
  Country: US (occurrence: US)
  Receive Date: 20160426
  Receipt Date: 20160426
  Transmission Date: 20160815
  Serious: No
  Sender: FDA-Public Use
  Company Number: US-ALKERMES INC.-ALK-2016-000180

PATIENT

DRUGS (2)
  1. ABILIFY [Concomitant]
     Active Substance: ARIPIPRAZOLE
     Indication: DEPRESSION
     Dosage: UNK
  2. VIVITROL [Suspect]
     Active Substance: NALTREXONE
     Indication: DRUG DEPENDENCE
     Dosage: 380 MG, QMO
     Route: 030
     Dates: start: 201512

REACTIONS (9)
  - Insomnia [Unknown]
  - Chest discomfort [Unknown]
  - Chest pain [Unknown]
  - Drug withdrawal syndrome [Unknown]
  - Decreased appetite [Unknown]
  - Dyspnoea [Unknown]
  - Tremor [Unknown]
  - Feeling abnormal [Unknown]
  - Vomiting [Not Recovered/Not Resolved]

NARRATIVE: CASE EVENT DATE: 20160121
